FAERS Safety Report 6829903-5 (Version None)
Quarter: 2010Q3

REPORT INFORMATION
  Report Type: 
  Country: None (occurrence: None)
  Receive Date: 20100711
  Receipt Date: 20100329
  Transmission Date: 20110219
  Serious: No
  Sender: FDA-Public Use
  Company Number: US-ALLERGAN-1004165US

PATIENT
  Age: 72 Year
  Sex: Female

DRUGS (5)
  1. LATISSE [Suspect]
     Indication: PRODUCT USED FOR UNKNOWN INDICATION
     Dosage: 1 GTT, QHS
     Dates: start: 20100201
  2. HYDROCHLOROTHIAZIDE [Concomitant]
     Indication: HYPERTENSION
     Dosage: UNK
  3. HORMONES NOS [Concomitant]
     Indication: HORMONE REPLACEMENT THERAPY
     Dosage: UNK
  4. ARMOUR [Concomitant]
     Indication: HYPOTHYROIDISM
     Dosage: UNK
  5. METOPROLOL [Concomitant]
     Indication: HYPERTENSION
     Dosage: UNK

REACTIONS (6)
  - ASTHENOPIA [None]
  - DRUG INEFFECTIVE [None]
  - EYE DISCHARGE [None]
  - EYE IRRITATION [None]
  - EYELID OEDEMA [None]
  - OCULAR HYPERAEMIA [None]
